FAERS Safety Report 16726546 (Version 1)
Quarter: 2019Q3

REPORT INFORMATION
  Report Type: Spontaneous
  Country: JP (occurrence: JP)
  Receive Date: 20190821
  Receipt Date: 20190821
  Transmission Date: 20191005
  Serious: Yes (Hospitalization, Other)
  Sender: FDA-Public Use
  Company Number: JP-ACTELION-A-US2019-193510

PATIENT
  Age: 70 Year
  Sex: Female

DRUGS (2)
  1. VENTAVIS [Suspect]
     Active Substance: ILOPROST
     Indication: PULMONARY ARTERIAL HYPERTENSION
     Dosage: 5 MCG
     Route: 055
     Dates: start: 20180201
  2. SELEXIPAG [Concomitant]
     Active Substance: SELEXIPAG
     Dosage: 1.6 MG, QD

REACTIONS (4)
  - General physical health deterioration [Not Recovered/Not Resolved]
  - Cardiac output increased [Unknown]
  - Portal hypertension [Unknown]
  - Pleural effusion [Not Recovered/Not Resolved]

NARRATIVE: CASE EVENT DATE: 20190710
